FAERS Safety Report 9662569 (Version 2)
Quarter: 2013Q4

REPORT INFORMATION
  Report Type: Spontaneous
  Country: US (occurrence: US)
  Receive Date: 20131031
  Receipt Date: 20131031
  Transmission Date: 20140711
  Serious: No
  Sender: FDA-Public Use
  Company Number: US-PURDUE-USA-2010-0057262

PATIENT
  Age: 63 Year
  Sex: Male
  Weight: 79.37 kg

DRUGS (4)
  1. OXYCONTIN (NDA 22-272) [Suspect]
     Indication: PAIN
     Dosage: 80 MG, TID
     Dates: start: 201010
  2. OXYCONTIN (NDA 22-272) [Suspect]
     Indication: NERVE INJURY
  3. OXYCONTIN (NDA 22-272) [Suspect]
     Indication: INTERVERTEBRAL DISC DEGENERATION
  4. OXYCONTIN (NDA 22-272) [Suspect]
     Indication: SCIATICA

REACTIONS (7)
  - Pain [Unknown]
  - Rhinorrhoea [Unknown]
  - Lacrimation increased [Unknown]
  - Inadequate analgesia [Unknown]
  - Intentional drug misuse [Unknown]
  - Diarrhoea [Unknown]
  - Hyperhidrosis [Unknown]
